FAERS Safety Report 8140495-3 (Version None)
Quarter: 2012Q1

REPORT INFORMATION
  Report Type: 
  Country: None (occurrence: None)
  Receive Date: 20120216
  Receipt Date: 20120214
  Transmission Date: 20120608
  Serious: Yes (Hospitalization, Disabling, Other)
  Sender: FDA-Public Use
  Company Number: US-PFIZER INC-2012040025

PATIENT
  Sex: Male
  Weight: 90.703 kg

DRUGS (2)
  1. LIPITOR [Suspect]
     Indication: BLOOD CHOLESTEROL INCREASED
     Dosage: 20 MG, 1X/DAY
     Route: 048
  2. XANAX [Concomitant]
     Dosage: 0.25 MG, UNK

REACTIONS (10)
  - HIP FRACTURE [None]
  - PELVIC FRACTURE [None]
  - INTERVERTEBRAL DISC INJURY [None]
  - ANXIETY DISORDER [None]
  - MENTAL DISORDER [None]
  - FALL [None]
  - BACK INJURY [None]
  - SPINAL FRACTURE [None]
  - INTERVERTEBRAL DISC PROTRUSION [None]
  - LIMB INJURY [None]
